FAERS Safety Report 5853564-5 (Version None)
Quarter: 2008Q3

REPORT INFORMATION
  Report Type: 
  Country: None (occurrence: None)
  Receive Date: 20080822
  Receipt Date: 20080819
  Transmission Date: 20090109
  Serious: Yes (Death, Other)
  Sender: FDA-Public Use
  Company Number: US-BRISTOL-MYERS SQUIBB COMPANY-14296222

PATIENT
  Age: 22 Year
  Sex: Male

DRUGS (7)
  1. CEFEPIME [Suspect]
     Indication: PNEUMONIA
     Route: 042
  2. CEFAZOLIN [Suspect]
     Indication: STAPHYLOCOCCAL INFECTION
  3. CEFOXITIN [Suspect]
     Indication: ANTIBIOTIC PROPHYLAXIS
  4. VANCOMYCIN HYDROCHLORIDE [Suspect]
     Indication: PNEUMONIA
     Dosage: GIVEN FOR 6 DAY
  5. METRONIDAZOLE [Suspect]
     Dosage: GIVEN FOR 4 DAYS
  6. IMIPENEM [Suspect]
     Dosage: CONTINUED FOR 2 DAYS.
  7. TIGECYCLINE [Suspect]

REACTIONS (2)
  - LEUKOPENIA [None]
  - SEPSIS [None]
